FAERS Safety Report 16271632 (Version 1)
Quarter: 2019Q2

REPORT INFORMATION
  Report Type: Spontaneous
  Country: DE (occurrence: DE)
  Receive Date: 20190503
  Receipt Date: 20190503
  Transmission Date: 20190711
  Serious: Yes (Other)
  Sender: FDA-Public Use
  Company Number: DE-ANIPHARMA-2019-DE-000059

PATIENT
  Age: 74 Year
  Sex: Female

DRUGS (4)
  1. TELMISARTAN. [Suspect]
     Active Substance: TELMISARTAN
     Dosage: UNK INCREASED BLOOD PRESSURE
     Route: 065
  2. AMLODIPINE [Suspect]
     Active Substance: AMLODIPINE BESYLATE
     Dosage: 10 MG QD
     Route: 065
  3. VERAPAMIL [Suspect]
     Active Substance: VERAPAMIL HYDROCHLORIDE
     Dosage: UNK
     Route: 065
  4. CANDESARTAN. [Suspect]
     Active Substance: CANDESARTAN
     Indication: PRODUCT USED FOR UNKNOWN INDICATION
     Dosage: 16 MG QD
     Route: 048

REACTIONS (3)
  - Drug ineffective [Unknown]
  - Restlessness [Unknown]
  - Hyponatraemia [Unknown]
